FAERS Safety Report 17347613 (Version 1)
Quarter: 2020Q1

REPORT INFORMATION
  Report Type: Report from Study
  Country: US (occurrence: US)
  Receive Date: 20200129
  Receipt Date: 20200129
  Transmission Date: 20200409
  Serious: No
  Sender: FDA-Public Use
  Company Number: US-EXELIXIS-CABO-19023515

PATIENT
  Age: 70 Year
  Sex: Female

DRUGS (2)
  1. CABOMETYX [Suspect]
     Active Substance: CABOZANTINIB S-MALATE
     Indication: THYROID CANCER
     Dosage: 60 MG, QD (AM WITHOUT FOOD)
     Dates: start: 20190812
  2. CABOMETYX [Suspect]
     Active Substance: CABOZANTINIB S-MALATE
     Indication: METASTASIS
     Dosage: 60 MG, QOD(AM W/O FOOD)
     Dates: start: 20190916

REACTIONS (11)
  - Taste disorder [Unknown]
  - General physical health deterioration [Unknown]
  - Off label use [Unknown]
  - Vomiting [Recovered/Resolved]
  - Weight decreased [Unknown]
  - Vertigo [Unknown]
  - Feeling hot [Unknown]
  - Fatigue [Recovering/Resolving]
  - Depression [Unknown]
  - Nausea [Recovered/Resolved]
  - Decreased appetite [Recovering/Resolving]

NARRATIVE: CASE EVENT DATE: 201908
